FAERS Safety Report 7377457-X (Version None)
Quarter: 2011Q1

REPORT INFORMATION
  Report Type: 
  Country: None (occurrence: None)
  Receive Date: 20110328
  Receipt Date: 20110314
  Transmission Date: 20110831
  Serious: Yes (Hospitalization)
  Sender: FDA-Public Use
  Company Number: PHHY2010AR74782

PATIENT
  Age: 44 Year
  Sex: Female

DRUGS (1)
  1. DIOVAN [Suspect]
     Indication: BLOOD PRESSURE
     Dosage: 1 TABLET DAILY, 160 MG

REACTIONS (4)
  - BLOOD CHOLESTEROL INCREASED [None]
  - CHEST PAIN [None]
  - TACHYCARDIA [None]
  - PAIN IN EXTREMITY [None]
